FAERS Safety Report 4421684-8 (Version None)
Quarter: 2004Q3

REPORT INFORMATION
  Report Type: 
  Country: None (occurrence: None)
  Receive Date: 20040804
  Receipt Date: 20040730
  Transmission Date: 20050211
  Serious: Yes (Hospitalization)
  Sender: FDA-Public Use
  Company Number: ZONI001462

PATIENT
  Age: 40 Year
  Sex: Male

DRUGS (3)
  1. ZONEGRAN [Suspect]
     Indication: CONVULSION
     Dosage: 200 MG 2 IN 1 D ORAL
     Route: 048
     Dates: start: 20040216, end: 20040710
  2. VALPROIC ACID (VALPROATE SEMISODIUM) [Concomitant]
  3. NEURONTIN [Concomitant]

REACTIONS (2)
  - NEPHROLITHIASIS [None]
  - PLATELET COUNT DECREASED [None]
